FAERS Safety Report 8798637 (Version 1)
Quarter: 2012Q4

REPORT INFORMATION
  Report Type: Spontaneous
  Country: US (occurrence: None)
  Receive Date: 20120914
  Receipt Date: 20120914
  Transmission Date: 20130627
  Serious: Yes (Hospitalization)
  Sender: FDA-Public Use
  Company Number: DKLU1084485

PATIENT
  Age: 17 Year
  Sex: Male

DRUGS (6)
  1. SABRIL (TABLET) (SABRIL) (VIGABATRIN) (500 MG, TABLET) [Suspect]
     Indication: COMPLEX PARTIAL SEIZURES
     Dosage: 1000 mg milligram(s), AM, Oral
     Route: 048
     Dates: start: 20100407
  2. SABRIL (TABLET) (SABRIL) (VIGABATRIN) (500 MG, TABLET) [Suspect]
     Indication: COMPLEX PARTIAL SEIZURES
     Dosage: 500 mg milligram(s), PM, Oral
     Route: 048
     Dates: start: 20100407
  3. LAMICTAL (LAMOTRIGINE) [Concomitant]
  4. KEPPRA (LEVETIRACETAM) [Concomitant]
  5. VALIUM (DIAZEPAM) [Concomitant]
  6. PHENOBARBITAL [Concomitant]

REACTIONS (2)
  - Hydrocephalus [None]
  - Convulsion [None]
